FAERS Safety Report 10476790 (Version 1)
Quarter: 2014Q3

REPORT INFORMATION
  Report Type: Spontaneous
  Country: PT (occurrence: PT)
  Receive Date: 20140925
  Receipt Date: 20140925
  Transmission Date: 20150326
  Serious: Yes (Hospitalization)
  Sender: FDA-Public Use
  Company Number: PHHY2014PT123064

PATIENT
  Age: 66 Year
  Sex: Male

DRUGS (7)
  1. BUDESONIDE. [Concomitant]
     Active Substance: BUDESONIDE
     Route: 045
  2. AZITROMICINE [Concomitant]
  3. TRIAMCINOLONE [Concomitant]
     Active Substance: TRIAMCINOLONE
     Route: 030
  4. MONTELUKAST [Concomitant]
     Active Substance: MONTELUKAST SODIUM
     Dosage: 10 MG, UNK
  5. BUDESONIDE W/FORMOTEROL [Concomitant]
  6. HYDROCORTISONE. [Suspect]
     Active Substance: HYDROCORTISONE
  7. EBASTINE [Concomitant]
     Active Substance: EBASTINE

REACTIONS (7)
  - Wheezing [Recovered/Resolved]
  - Urinary incontinence [Recovered/Resolved]
  - Dyspnoea [Recovered/Resolved]
  - Rash generalised [Recovered/Resolved]
  - Conjunctivitis [Recovered/Resolved]
  - Anaphylactic reaction [Recovered/Resolved]
  - Rash erythematous [Recovered/Resolved]
